FAERS Safety Report 7339265-5 (Version None)
Quarter: 2011Q1

REPORT INFORMATION
  Report Type: 
  Country: None (occurrence: None)
  Receive Date: 20110308
  Receipt Date: 20110301
  Transmission Date: 20110831
  Serious: Yes (Hospitalization)
  Sender: FDA-Public Use
  Company Number: CH-PFIZER INC-2011044044

PATIENT
  Age: 92 Year
  Sex: Male

DRUGS (6)
  1. TOREM [Concomitant]
     Dosage: 20 MG, 1X/DAY
     Route: 048
  2. EFFEXOR [Suspect]
     Dosage: 37.5 MG, 1X/DAY
     Route: 048
  3. AMIODARONE [Interacting]
     Indication: MYOCARDIAL ISCHAEMIA
     Dosage: 200 MG, 1X/DAY
     Route: 048
  4. TEMESTA [Concomitant]
     Dosage: UNK
     Route: 048
  5. SINTROM [Interacting]
     Indication: PULMONARY EMBOLISM
     Dosage: UNK
     Route: 048
     Dates: end: 20101225
  6. NITRODERM MATRIX [Concomitant]
     Dosage: UNK

REACTIONS (6)
  - PROTHROMBIN TIME PROLONGED [None]
  - DRUG INTERACTION [None]
  - GASTROINTESTINAL HAEMORRHAGE [None]
  - MELAENA [None]
  - ANAEMIA [None]
  - HAEMATEMESIS [None]
